FAERS Safety Report 10924883 (Version 2)
Quarter: 2015Q2

REPORT INFORMATION
  Report Type: Spontaneous
  Country: US (occurrence: US)
  Receive Date: 20150318
  Receipt Date: 20150524
  Transmission Date: 20150821
  Serious: No
  Sender: FDA-Public Use
  Company Number: US-JNJFOC-20140403079

PATIENT
  Sex: Male

DRUGS (2)
  1. NIZORAL A-D [Suspect]
     Active Substance: KETOCONAZOLE
     Indication: TINEA CRURIS
     Route: 061
     Dates: start: 20140402
  2. NIZORAL A-D [Suspect]
     Active Substance: KETOCONAZOLE
     Indication: TINEA PEDIS
     Route: 061
     Dates: start: 20140402

REACTIONS (1)
  - Incorrect route of drug administration [Unknown]

NARRATIVE: CASE EVENT DATE: 20140402
